FAERS Safety Report 23505597 (Version 1)
Quarter: 2024Q1

REPORT INFORMATION
  Report Type: Spontaneous
  Country: US (occurrence: US)
  Receive Date: 20240209
  Receipt Date: 20240209
  Transmission Date: 20240410
  Serious: No
  Sender: FDA-Public Use
  Company Number: US-BRISTOL-MYERS SQUIBB COMPANY-2024-020680

PATIENT
  Age: 66 Year
  Sex: Male
  Weight: 103.42 kg

DRUGS (1)
  1. ONUREG [Suspect]
     Active Substance: AZACITIDINE
     Indication: Acute myeloid leukaemia
     Dosage: FREQUENCY: 2WKSON,2WKSOFF
     Route: 048

REACTIONS (2)
  - Nausea [Recovering/Resolving]
  - Off label use [Unknown]
